FAERS Safety Report 7862070-8 (Version None)
Quarter: 2011Q4

REPORT INFORMATION
  Report Type: 
  Country: None (occurrence: None)
  Receive Date: 20111027
  Receipt Date: 20101123
  Transmission Date: 20120403
  Serious: No
  Sender: FDA-Public Use
  Company Number: US-AMGEN-USASP2010006216

PATIENT
  Age: 47 Year
  Sex: Female

DRUGS (3)
  1. ENBREL [Suspect]
     Indication: PSORIATIC ARTHROPATHY
  2. METHOTREXATE [Concomitant]
     Dosage: 5 MG, QWK
     Dates: start: 20060401
  3. ENBREL [Suspect]
     Indication: PSORIASIS
     Dates: start: 20060401

REACTIONS (3)
  - CHEST PAIN [None]
  - NASOPHARYNGITIS [None]
  - FIBROMYALGIA [None]
